FAERS Safety Report 9846762 (Version 2)
Quarter: 2014Q1

REPORT INFORMATION
  Report Type: Spontaneous
  Country: US (occurrence: US)
  Receive Date: 20140127
  Receipt Date: 20140127
  Transmission Date: 20141002
  Serious: No
  Sender: FDA-Public Use
  Company Number: US-GILEAD-2011-0047288

PATIENT
  Sex: Male
  Weight: 65.31 kg

DRUGS (9)
  1. COMPLERA [Suspect]
     Indication: HIV INFECTION
     Dosage: 1 DF, UNK
     Route: 048
     Dates: start: 20111018, end: 20120220
  2. ATRIPLA [Suspect]
     Indication: HIV INFECTION
     Dosage: UNK
     Dates: start: 200804
  3. LOVAZA [Concomitant]
     Dosage: UNK
     Dates: start: 20100628
  4. CRESTOR [Concomitant]
     Indication: BLOOD CHOLESTEROL
     Dosage: UNK
     Dates: start: 20091228
  5. ASA [Concomitant]
     Dosage: UNK
     Dates: start: 20090629
  6. ZESTRIL [Concomitant]
     Indication: HYPERTENSION
     Dosage: UNK
     Dates: start: 20080407
  7. LOPRESSOR [Concomitant]
  8. PLAVIX                             /01220701/ [Concomitant]
     Dosage: UNK
     Dates: start: 20080407
  9. IBUPROFEN [Concomitant]
     Indication: PAIN
     Dosage: UNK
     Dates: start: 20091228

REACTIONS (5)
  - Disturbance in attention [Unknown]
  - Fatigue [Unknown]
  - Blood creatinine increased [Unknown]
  - Aspartate aminotransferase increased [Unknown]
  - Alanine aminotransferase increased [Unknown]
